FAERS Safety Report 21435764 (Version 1)
Quarter: 2022Q4

REPORT INFORMATION
  Report Type: Spontaneous
  Country: FR (occurrence: FR)
  Receive Date: 20221010
  Receipt Date: 20221010
  Transmission Date: 20230113
  Serious: Yes (Hospitalization)
  Sender: FDA-Public Use
  Company Number: None

PATIENT
  Age: 20 Year
  Sex: Female
  Weight: 70 kg

DRUGS (1)
  1. IBUPROFEN [Suspect]
     Active Substance: IBUPROFEN
     Indication: Dysmenorrhoea
     Dosage: 1 DOSAGE FORM
     Route: 048
     Dates: start: 20220720, end: 20220725

REACTIONS (2)
  - Acute kidney injury [Recovered/Resolved]
  - Renal ischaemia [Recovered/Resolved]

NARRATIVE: CASE EVENT DATE: 20220726
